FAERS Safety Report 19067147 (Version 1)
Quarter: 2021Q1

REPORT INFORMATION
  Report Type: Spontaneous
  Country: JP (occurrence: JP)
  Receive Date: 20210329
  Receipt Date: 20210329
  Transmission Date: 20210420
  Serious: Yes (Death, Other)
  Sender: FDA-Public Use
  Company Number: JP-SAKK-2021SA087996AA

PATIENT
  Age: 68 Year
  Sex: Female

DRUGS (1)
  1. EVOLTRA [Suspect]
     Active Substance: CLOFARABINE
     Indication: ACUTE LYMPHOCYTIC LEUKAEMIA RECURRENT
     Route: 041

REACTIONS (3)
  - Corynebacterium infection [Fatal]
  - Haematotoxicity [Unknown]
  - Respiratory failure [Fatal]
